FAERS Safety Report 9543301 (Version 1)
Quarter: 2013Q3

REPORT INFORMATION
  Report Type: Report from Study
  Country: AR (occurrence: AR)
  Receive Date: 20130923
  Receipt Date: 20130923
  Transmission Date: 20140515
  Serious: Yes (Hospitalization, Other)
  Sender: FDA-Public Use
  Company Number: PHHY2013AR105224

PATIENT
  Sex: Female

DRUGS (2)
  1. DIOVAN [Suspect]
     Indication: BLOOD PRESSURE
     Dosage: 1 DF (80 MG) DAILY
     Route: 048
  2. DIOVAN [Suspect]
     Dosage: 1 DF (160 MG) DAILY
     Route: 048

REACTIONS (3)
  - Hypertension [Recovering/Resolving]
  - Wrist fracture [Recovering/Resolving]
  - Fall [Unknown]
